FAERS Safety Report 5148283-7 (Version None)
Quarter: 2006Q4

REPORT INFORMATION
  Report Type: 
  Country: None (occurrence: None)
  Receive Date: 20061106
  Receipt Date: 20061025
  Transmission Date: 20070319
  Serious: Yes (Other)
  Sender: FDA-Public Use
  Company Number: CAWYE367530OCT06

PATIENT
  Age: 15 Year
  Sex: Male

DRUGS (1)
  1. RAPAMUNE [Suspect]
     Indication: TRANSPLANT REJECTION

REACTIONS (5)
  - DRUG INEFFECTIVE [None]
  - NAIL DISORDER [None]
  - NAIL INFECTION [None]
  - OSTEOMYELITIS [None]
  - TRANSPLANT REJECTION [None]
